FAERS Safety Report 6793120-8 (Version None)
Quarter: 2010Q2

REPORT INFORMATION
  Report Type: 
  Country: None (occurrence: None)
  Receive Date: 20100624
  Receipt Date: 20090611
  Transmission Date: 20101027
  Serious: Yes (Death)
  Sender: FDA-Public Use
  Company Number: US-MYLANLABS-2009S1008975

PATIENT
  Age: 60 Year
  Sex: Male

DRUGS (3)
  1. CLOZAPINE [Suspect]
     Indication: SCHIZOPHRENIA
     Route: 048
     Dates: end: 20090518
  2. PROZAC [Concomitant]
  3. DEPAKOTE [Concomitant]

REACTIONS (1)
  - LUNG NEOPLASM MALIGNANT [None]
